FAERS Safety Report 8076167-3 (Version None)
Quarter: 2012Q1

REPORT INFORMATION
  Report Type: 
  Country: None (occurrence: None)
  Receive Date: 20120127
  Receipt Date: 20120125
  Transmission Date: 20120608
  Serious: Yes (Death, Hospitalization)
  Sender: FDA-Public Use
  Company Number: CA-B.I. PHARMACEUTICALS,INC./RIDGEFIELD-2012-CN-00128CN

PATIENT
  Age: 86 Year
  Sex: Male

DRUGS (11)
  1. METOPROLOL TARTRATE [Concomitant]
  2. ENOXAPARIN [Concomitant]
     Dates: end: 20120122
  3. FINASTERIDE [Concomitant]
     Indication: BENIGN PROSTATIC HYPERPLASIA
  4. ACETAMINOPHEN [Concomitant]
  5. ATORVASTATIN [Concomitant]
  6. ATIVAN [Concomitant]
  7. DIAZEPAM [Concomitant]
  8. PRADAXA [Suspect]
     Dosage: 220 MG
     Dates: start: 20120119
  9. ALFUZOSIN HCL [Concomitant]
     Indication: BENIGN PROSTATIC HYPERPLASIA
  10. TRAZODONE HCL [Concomitant]
  11. ASPIRIN [Concomitant]
     Dates: end: 20120122

REACTIONS (3)
  - SUPRAVENTRICULAR TACHYCARDIA [None]
  - RECTAL HAEMORRHAGE [None]
  - PNEUMONIA [None]
